FAERS Safety Report 9348561 (Version 1)
Quarter: 2013Q2

REPORT INFORMATION
  Report Type: Spontaneous
  Country: US (occurrence: None)
  Receive Date: 20130613
  Receipt Date: 20130613
  Transmission Date: 20140414
  Serious: Yes (Hospitalization)
  Sender: FDA-Public Use
  Company Number: None

PATIENT
  Age: 57 Year
  Sex: Female
  Weight: 86.18 kg

DRUGS (1)
  1. CEPHALEXIN [Suspect]
     Indication: TOOTH INFECTION
     Dosage: 1 CAPSULE EVERY 8 HRS MOUTH
     Dates: start: 20130502, end: 20130508

REACTIONS (3)
  - Rash generalised [None]
  - Drug hypersensitivity [None]
  - Lip swelling [None]
